FAERS Safety Report 9239881 (Version 3)
Quarter: 2013Q2

REPORT INFORMATION
  Report Type: Spontaneous
  Country: DE (occurrence: DE)
  Receive Date: 20130418
  Receipt Date: 20130624
  Transmission Date: 20140414
  Serious: Yes (Hospitalization)
  Sender: FDA-Public Use
  Company Number: DE-GILEAD-2013-0073824

PATIENT
  Sex: Female

DRUGS (15)
  1. RANOLAZINE [Suspect]
     Indication: ANGINA PECTORIS
     Dosage: 375 MG, BID
     Route: 048
     Dates: start: 20110302, end: 201304
  2. L-THYROXIN [Concomitant]
     Dosage: 75 ?G, QD
     Route: 048
  3. DELIX                              /00885601/ [Concomitant]
     Dosage: 5 MG, QD
     Route: 048
  4. ACC                                /00082801/ [Concomitant]
     Dosage: 600 MG, QD
     Route: 048
  5. VITAMIN B1 [Concomitant]
     Dosage: 1000 ?G, Q1MONTH
     Route: 030
  6. BISOPROLOL                         /00802602/ [Concomitant]
     Dosage: 5 MG, QD
     Route: 048
  7. BISOPROLOL                         /00802602/ [Concomitant]
     Dosage: 5 MG, BID
     Route: 048
     Dates: start: 201304, end: 201304
  8. PANTOZOL                           /01263204/ [Concomitant]
     Dosage: 20 MG, QD
     Route: 048
  9. ASS [Concomitant]
     Dosage: 100 MG, QD
     Route: 048
  10. TOREM                              /01036501/ [Concomitant]
     Dosage: 10 MG, QD
     Route: 048
  11. METAMIZOLE [Concomitant]
     Indication: PAIN
     Dosage: 500 MG, QID
     Route: 048
     Dates: start: 201301
  12. VITAMIN B12 NOS [Concomitant]
     Indication: ANAEMIA VITAMIN B12 DEFICIENCY
     Dosage: 1000 ?G, Q1MONTH
     Dates: start: 201301
  13. METOCLOPRAMIDE [Concomitant]
     Indication: NAUSEA
     Dosage: 80 DF, QD
     Dates: start: 201301
  14. FOLSAN [Concomitant]
     Indication: ANAEMIA FOLATE DEFICIENCY
     Dosage: 5 MG, QD
     Dates: start: 201301
  15. TILIDINE [Concomitant]
     Dosage: 40 DF, QD
     Dates: start: 201301

REACTIONS (2)
  - Epilepsy [Recovered/Resolved]
  - Cardiac failure [Recovered/Resolved]
